FAERS Safety Report 9745608 (Version 3)
Quarter: 2014Q1

REPORT INFORMATION
  Report Type: Report from Study
  Country: NL (occurrence: NL)
  Receive Date: 20131211
  Receipt Date: 20140113
  Transmission Date: 20141002
  Serious: Yes (Hospitalization)
  Sender: FDA-Public Use
  Company Number: NL-ROCHE-1317293

PATIENT
  Age: 68 Year
  Sex: Male

DRUGS (15)
  1. VEMURAFENIB [Suspect]
     Indication: MALIGNANT MELANOMA
     Route: 048
     Dates: start: 20120727, end: 20120924
  2. VEMURAFENIB [Suspect]
     Route: 048
     Dates: start: 20121012
  3. UREA CREAM [Concomitant]
     Route: 065
     Dates: start: 20120827
  4. OXYNORM [Concomitant]
     Route: 065
  5. PARACETAMOL [Concomitant]
     Route: 065
  6. ALENDRONIC ACID [Concomitant]
     Route: 065
  7. MOVICOLON [Concomitant]
     Dosage: 1/SACHET
     Route: 065
  8. AMLODIPINE [Concomitant]
     Route: 065
     Dates: start: 20120924
  9. SIMVASTATINE [Concomitant]
     Route: 065
  10. PANTOPRAZOL [Concomitant]
     Route: 065
  11. CARBASALATE CALCIUM [Concomitant]
     Route: 065
  12. OXYBUTYNIN [Concomitant]
  13. LOPERAMIDE [Concomitant]
     Route: 065
     Dates: start: 20130126
  14. HYDROCHLOROTHIAZIDE [Concomitant]
     Route: 065
     Dates: start: 20130315
  15. LISINOPRIL [Concomitant]
     Route: 065
     Dates: start: 20130924

REACTIONS (1)
  - Pneumonia [Recovered/Resolved]
